FAERS Safety Report 5452991-8 (Version None)
Quarter: 2007Q3

REPORT INFORMATION
  Report Type: 
  Country: None (occurrence: None)
  Receive Date: 20070914
  Receipt Date: 20070910
  Transmission Date: 20080115
  Serious: Yes (Death)
  Sender: FDA-Public Use
  Company Number: US-GENENTECH-247319

PATIENT
  Sex: Female
  Weight: 54.422 kg

DRUGS (4)
  1. RITUXAN [Suspect]
     Indication: NEUROMYELITIS OPTICA
     Dosage: 375 MG/M2, 1/WEEK
     Route: 042
     Dates: start: 20070822
  2. NEURONTIN [Concomitant]
     Indication: DRUG USE FOR UNKNOWN INDICATION
     Dosage: UNK MG, TID
  3. STEROIDS (UNK INGREDIENTS) [Concomitant]
     Indication: NEUROMYELITIS OPTICA
  4. GRTPA [Concomitant]
     Indication: NEUROMYELITIS OPTICA

REACTIONS (2)
  - CARDIO-RESPIRATORY ARREST [None]
  - DYSPNOEA [None]
